FAERS Safety Report 10462134 (Version 2)
Quarter: 2014Q3

REPORT INFORMATION
  Report Type: Spontaneous
  Country: US (occurrence: US)
  Receive Date: 20140918
  Receipt Date: 20140918
  Transmission Date: 20150326
  Serious: Yes (Hospitalization)
  Sender: FDA-Public Use
  Company Number: US-GLAXOSMITHKLINE-A0867255A

PATIENT
  Sex: Male

DRUGS (1)
  1. AVANDIA [Suspect]
     Active Substance: ROSIGLITAZONE MALEATE
     Indication: DIABETES MELLITUS
     Dosage: 4MG PER DAY
     Route: 065
     Dates: end: 2007

REACTIONS (16)
  - Myocardial infarction [Not Recovered/Not Resolved]
  - Renal failure acute [Unknown]
  - Angina unstable [Unknown]
  - Pleural effusion [Unknown]
  - Bradycardia [Unknown]
  - Supraventricular tachycardia [Unknown]
  - Embolic stroke [Unknown]
  - Pericardial effusion [Unknown]
  - Arterial occlusive disease [Unknown]
  - Coronary artery disease [Unknown]
  - Cardiac failure congestive [Unknown]
  - Atrial fibrillation [Unknown]
  - Cardiac disorder [Unknown]
  - Depression [Unknown]
  - Respiratory failure [Unknown]
  - Cardiac operation [Unknown]
